FAERS Safety Report 5369986-5 (Version None)
Quarter: 2007Q2

REPORT INFORMATION
  Report Type: 
  Country: None (occurrence: None)
  Receive Date: 20070626
  Receipt Date: 20070619
  Transmission Date: 20071010
  Serious: Yes (Hospitalization, Other)
  Sender: FDA-Public Use
  Company Number: PHNU2007DE02193

PATIENT
  Sex: Male

DRUGS (2)
  1. SANDIMMUNE [Suspect]
     Indication: AUTOIMMUNE DISORDER
     Dosage: 0.38 ML, BID
     Route: 048
     Dates: start: 20000201
  2. DECORTIN-H [Concomitant]
     Dosage: 3 MG DAILY

REACTIONS (4)
  - LEUKOPENIA [None]
  - NASOPHARYNGITIS [None]
  - RED BLOOD CELL COUNT DECREASED [None]
  - THROMBOCYTOPENIA [None]
